FAERS Safety Report 9946818 (Version 1)
Quarter: 2014Q1

REPORT INFORMATION
  Report Type: Spontaneous
  Country: GB (occurrence: GB)
  Receive Date: 20140303
  Receipt Date: 20140303
  Transmission Date: 20141002
  Serious: Yes (Hospitalization)
  Sender: FDA-Public Use
  Company Number: GB-JNJFOC-20140217716

PATIENT
  Age: 15 Year
  Sex: Male
  Weight: 67 kg

DRUGS (2)
  1. IBUPROFEN [Suspect]
     Route: 048
  2. IBUPROFEN [Suspect]
     Indication: PRODUCT USED FOR UNKNOWN INDICATION
     Dosage: 400 (UNIT UNSPECIFIED)
     Route: 048

REACTIONS (1)
  - Renal failure acute [Recovered/Resolved]
